FAERS Safety Report 7564342-3 (Version None)
Quarter: 2011Q2

REPORT INFORMATION
  Report Type: 
  Country: None (occurrence: None)
  Receive Date: 20110622
  Receipt Date: 20110610
  Transmission Date: 20111010
  Serious: Yes (Other)
  Sender: FDA-Public Use
  Company Number: PHEH2007US03696

PATIENT
  Sex: Male
  Weight: 63.039 kg

DRUGS (20)
  1. OMEPRAZOLE [Concomitant]
  2. GABAPENTIN [Concomitant]
  3. LISINOPRIL [Concomitant]
  4. TEMAZEPAM [Concomitant]
  5. RADIATION THERAPY [Concomitant]
  6. INDOMETHACIN [Concomitant]
  7. ALBUTEROL SULFATE AUTOHALER [Concomitant]
  8. ETODOLAC [Concomitant]
  9. TRAMADOL HCL [Concomitant]
  10. ZOMETA [Suspect]
     Dosage: 4 MG, QMO
     Route: 042
     Dates: start: 20060101
  11. MOTRIN [Concomitant]
     Dosage: 800 MG, UNK
  12. CALCIUM CARBONATE [Concomitant]
  13. CLOBETASOL PROPIONATE [Concomitant]
     Dosage: 0.05 UNK, UNK
  14. DECADRON [Concomitant]
     Dosage: 40 MG, UNK
  15. ATENOLOL [Concomitant]
  16. LIDOCAINE [Concomitant]
  17. CHEMOTHERAPEUTICS NOS [Concomitant]
  18. TRAZODONE HCL [Concomitant]
  19. CLOTRIMAZOLE [Concomitant]
     Dosage: 1 %, UNK
     Route: 061
  20. IBUPROFEN [Concomitant]

REACTIONS (38)
  - SPINAL COMPRESSION FRACTURE [None]
  - DECREASED INTEREST [None]
  - RASH PAPULAR [None]
  - BONE LESION [None]
  - POOR DENTAL CONDITION [None]
  - IMPAIRED HEALING [None]
  - MITRAL VALVE INCOMPETENCE [None]
  - VENTRICULAR EXTRASYSTOLES [None]
  - PAIN [None]
  - CELLULITIS [None]
  - HERPES ZOSTER [None]
  - BUNDLE BRANCH BLOCK RIGHT [None]
  - CORONARY ARTERY DISEASE [None]
  - BONE DISORDER [None]
  - DENTAL CARIES [None]
  - BONE PAIN [None]
  - JOINT SWELLING [None]
  - OSTEITIS [None]
  - BONE EROSION [None]
  - ANAEMIA [None]
  - LEFT VENTRICULAR HYPERTROPHY [None]
  - ELECTROCARDIOGRAM T WAVE INVERSION [None]
  - PULMONARY FIBROSIS [None]
  - ARTHRALGIA [None]
  - OSTEONECROSIS OF JAW [None]
  - ANXIETY [None]
  - PAIN IN JAW [None]
  - MEDICAL DEVICE COMPLICATION [None]
  - STOMATITIS [None]
  - MOUTH ULCERATION [None]
  - GENERAL PHYSICAL HEALTH DETERIORATION [None]
  - TOOTH LOSS [None]
  - OSTEOLYSIS [None]
  - ACUTE FEBRILE NEUTROPHILIC DERMATOSIS [None]
  - INGUINAL HERNIA [None]
  - HYPERTENSION [None]
  - CATARACT [None]
  - DYSLIPIDAEMIA [None]
